FAERS Safety Report 11840525 (Version 1)
Quarter: 2015Q4

REPORT INFORMATION
  Report Type: Spontaneous
  Country: IE (occurrence: None)
  Receive Date: 20151215
  Receipt Date: 20151215
  Transmission Date: 20160305
  Serious: Yes (Disabling)
  Sender: FDA-Public Use
  Company Number: None

PATIENT
  Age: 76 Year
  Sex: Male
  Weight: 90.72 kg

DRUGS (4)
  1. AMLODIPINE [Concomitant]
     Active Substance: AMLODIPINE BESYLATE
  2. ELANTAN [Concomitant]
     Active Substance: ISOSORBIDE MONONITRATE
  3. PERINDOPRIL ERBUMINE 8ML GLENMARK [Suspect]
     Active Substance: PERINDOPRIL ERBUMINE
     Indication: MYOCARDIAL INFARCTION
     Route: 048
     Dates: start: 20141031, end: 20151214
  4. ASPIRIN. [Concomitant]
     Active Substance: ASPIRIN

REACTIONS (5)
  - Blood pressure increased [None]
  - Pulmonary fibrosis [None]
  - Condition aggravated [None]
  - Cardiac disorder [None]
  - Dyspnoea [None]

NARRATIVE: CASE EVENT DATE: 20151214
